FAERS Safety Report 9915499 (Version 3)
Quarter: 2014Q1

REPORT INFORMATION
  Report Type: Spontaneous
  Country: AU (occurrence: AU)
  Receive Date: 20140221
  Receipt Date: 20140319
  Transmission Date: 20141002
  Serious: Yes (Other)
  Sender: FDA-Public Use
  Company Number: AU-RANBAXY-2014RR-78194

PATIENT
  Age: 46 Year
  Sex: Female

DRUGS (5)
  1. LEVETIRACETAM [Suspect]
     Indication: STATUS EPILEPTICUS
     Dosage: 500 MG, BID
     Route: 048
     Dates: start: 2001
  2. LAMOTRIGINE [Suspect]
     Indication: STATUS EPILEPTICUS
     Dosage: 200 MG I MANE AND II NOCTE
     Route: 048
     Dates: start: 2006
  3. LAMOTRIGINE [Suspect]
     Indication: STATUS EPILEPTICUS
     Dosage: UNK
     Route: 048
  4. VALPROIC ACID [Concomitant]
     Indication: IDIOPATHIC GENERALISED EPILEPSY
     Dosage: UNK
     Route: 048
     Dates: end: 2009
  5. GABAPENTIN [Concomitant]
     Indication: IDIOPATHIC GENERALISED EPILEPSY
     Dosage: UNK
     Route: 048
     Dates: end: 2009

REACTIONS (1)
  - Pathological gambling [Unknown]
